FAERS Safety Report 5465732-5 (Version None)
Quarter: 2007Q3

REPORT INFORMATION
  Report Type: 
  Country: None (occurrence: None)
  Receive Date: 20070919
  Receipt Date: 20070919
  Transmission Date: 20080115
  Serious: Yes (Other)
  Sender: FDA-Public Use
  Company Number: None

PATIENT
  Age: 63 Year
  Sex: Female

DRUGS (1)
  1. TOPROL-XL [Suspect]
     Indication: SINUS TACHYCARDIA
     Dosage: TAKE 1 TABLET DAILY   (DURATION: SEVERAL YEARS)

REACTIONS (2)
  - PALPITATIONS [None]
  - RASH MACULAR [None]
